FAERS Safety Report 15940929 (Version 4)
Quarter: 2019Q1

REPORT INFORMATION
  Report Type: Spontaneous
  Country: US (occurrence: US)
  Receive Date: 20190208
  Receipt Date: 20190227
  Transmission Date: 20190417
  Serious: Yes (Hospitalization)
  Sender: FDA-Public Use
  Company Number: US-CELGENEUS-USA-20190110635

PATIENT
  Sex: Female
  Weight: 60.38 kg

DRUGS (3)
  1. REVLIMID [Suspect]
     Active Substance: LENALIDOMIDE
     Indication: PLASMA CELL MYELOMA
     Dosage: 10 MILLIGRAM
     Route: 048
     Dates: start: 201811
  2. REVLIMID [Suspect]
     Active Substance: LENALIDOMIDE
     Dosage: 10 MILLIGRAM
     Route: 048
     Dates: start: 20190201
  3. VELCADE [Concomitant]
     Active Substance: BORTEZOMIB
     Indication: PRODUCT USED FOR UNKNOWN INDICATION
     Route: 065

REACTIONS (7)
  - Full blood count decreased [Recovered/Resolved]
  - Dialysis [Recovered/Resolved]
  - Asthenia [Unknown]
  - Transient ischaemic attack [Recovered/Resolved]
  - Neutropenia [Not Recovered/Not Resolved]
  - Fall [Recovered/Resolved]
  - Lymphoma [Recovered/Resolved]
